FAERS Safety Report 17354612 (Version 1)
Quarter: 2020Q1

REPORT INFORMATION
  Report Type: Spontaneous
  Country: US (occurrence: US)
  Receive Date: 20200130
  Receipt Date: 20200130
  Transmission Date: 20200409
  Serious: Yes (Other)
  Sender: FDA-Public Use
  Company Number: None

PATIENT
  Age: 48 Year
  Sex: Male
  Weight: 105.75 kg

DRUGS (9)
  1. TRULICITY [Concomitant]
     Active Substance: DULAGLUTIDE
  2. VITAMIN C [Concomitant]
     Active Substance: ASCORBIC ACID
  3. LISINPRIL [Concomitant]
  4. GLIMPRIDE [Concomitant]
  5. OMEPRAZOLE. [Concomitant]
     Active Substance: OMEPRAZOLE
  6. PRAVASTATIN. [Suspect]
     Active Substance: PRAVASTATIN
     Indication: DIABETES MELLITUS
     Dosage: ?          QUANTITY:1 TABLET(S);?
     Route: 048
     Dates: start: 20200116, end: 20200116
  7. VITAMIN B12 [Concomitant]
     Active Substance: CYANOCOBALAMIN
  8. PRAVASTATIN. [Suspect]
     Active Substance: PRAVASTATIN
     Indication: ISCHAEMIC HEART DISEASE PROPHYLAXIS
     Dosage: ?          QUANTITY:1 TABLET(S);?
     Route: 048
     Dates: start: 20200116, end: 20200116
  9. LIBRE [Concomitant]

REACTIONS (3)
  - Depressed level of consciousness [None]
  - Muscle spasms [None]
  - Blood glucose increased [None]

NARRATIVE: CASE EVENT DATE: 20200116
